FAERS Safety Report 4413904-0 (Version None)
Quarter: 2004Q3

REPORT INFORMATION
  Report Type: 
  Country: None (occurrence: None)
  Receive Date: 20040729
  Receipt Date: 20040726
  Transmission Date: 20050211
  Serious: Yes (Disabling)
  Sender: FDA-Public Use
  Company Number: NLWYE818210JUN04

PATIENT
  Age: 41 Year
  Sex: Female

DRUGS (3)
  1. EFFEXOR [Suspect]
     Indication: DEPRESSION
     Dosage: 37.5 MG 2X PER 1 DAY ORAL
     Route: 048
     Dates: start: 20000323
  2. EFFEXOR [Suspect]
     Indication: PANIC DISORDER
     Dosage: 37.5 MG 2X PER 1 DAY ORAL
     Route: 048
     Dates: start: 20000323
  3. HALDOL [Suspect]
     Indication: AGGRESSION
     Dosage: 5 MG 3X PER 1 DAY

REACTIONS (4)
  - CONDITION AGGRAVATED [None]
  - DRUG INTERACTION [None]
  - DYSKINESIA [None]
  - DYSTONIA [None]
